FAERS Safety Report 9363036 (Version 1)
Quarter: 2013Q2

REPORT INFORMATION
  Report Type: Spontaneous
  Country: US (occurrence: US)
  Receive Date: 20130624
  Receipt Date: 20130624
  Transmission Date: 20140414
  Serious: No
  Sender: FDA-Public Use
  Company Number: US-PFIZER INC-2013183405

PATIENT
  Age: 76 Year
  Sex: Female

DRUGS (1)
  1. REVATIO [Suspect]
     Indication: AORTIC VALVE DISEASE
     Dosage: 20 MG, 3X/DAY
     Dates: start: 20130402

REACTIONS (2)
  - Pain [Unknown]
  - Off label use [Unknown]
